FAERS Safety Report 18712719 (Version 1)
Quarter: 2021Q1

REPORT INFORMATION
  Report Type: Spontaneous
  Country: US (occurrence: US)
  Receive Date: 20210107
  Receipt Date: 20210107
  Transmission Date: 20210419
  Serious: Yes (Hospitalization)
  Sender: FDA-Public Use
  Company Number: None

PATIENT
  Age: 59 Year
  Sex: Male
  Weight: 83.6 kg

DRUGS (1)
  1. REMDESIVIR. [Suspect]
     Active Substance: REMDESIVIR
     Indication: COVID-19
     Route: 041
     Dates: start: 20210105, end: 20210107

REACTIONS (4)
  - Rash erythematous [None]
  - Rash papular [None]
  - Rash pruritic [None]
  - Rash [None]

NARRATIVE: CASE EVENT DATE: 20210107
